FAERS Safety Report 13254719 (Version 2)
Quarter: 2017Q1

REPORT INFORMATION
  Report Type: Spontaneous
  Country: JP (occurrence: JP)
  Receive Date: 20170221
  Receipt Date: 20170322
  Transmission Date: 20170428
  Serious: Yes (Hospitalization, Other)
  Sender: FDA-Public Use
  Company Number: JP-009507513-1702JPN001380J

PATIENT
  Age: 70 Year
  Sex: Female
  Weight: 48.3 kg

DRUGS (10)
  1. SOSEGON [Concomitant]
     Active Substance: PENTAZOCINE
     Dosage: 15 MG, UNK
     Route: 042
     Dates: start: 20161106, end: 20161106
  2. CALONAL [Concomitant]
     Active Substance: ACETAMINOPHEN
     Dosage: 600 MG, UNK
     Route: 048
     Dates: start: 20161129, end: 20161206
  3. PEGINTRON [Suspect]
     Active Substance: PEGINTERFERON ALFA-2B
     Dosage: 3 MICROGRAM PER KILOGRAM, QW
     Route: 058
     Dates: start: 20161129, end: 20170110
  4. PEGINTRON [Suspect]
     Active Substance: PEGINTERFERON ALFA-2B
     Indication: MALIGNANT MELANOMA
     Dosage: 6 MICROGRAM PER KILOGRAM, QW
     Route: 058
     Dates: start: 20161024, end: 20161106
  5. ZOSYN [Concomitant]
     Active Substance: PIPERACILLIN SODIUM\TAZOBACTAM SODIUM
     Dosage: 13.5 G, UNK
     Route: 042
     Dates: start: 20161104, end: 20161108
  6. ACELIO [Concomitant]
     Active Substance: ACETAMINOPHEN
     Dosage: 3000 MG, UNK
     Route: 042
     Dates: start: 20161105, end: 20161112
  7. ATARAX [Concomitant]
     Active Substance: HYDROXYZINE HYDROCHLORIDE
     Dosage: 25 MG, UNK
     Route: 042
     Dates: start: 20161106, end: 20161106
  8. MEROPENEM. [Concomitant]
     Active Substance: MEROPENEM
     Dosage: 1.5 G, UNK
     Route: 042
     Dates: start: 20161108, end: 20161112
  9. METOCLOPRAMIDE. [Concomitant]
     Active Substance: METOCLOPRAMIDE
     Dosage: 20 MG, UNK
     Route: 042
     Dates: start: 20161105, end: 20161112
  10. LEVOFLOXACIN. [Concomitant]
     Active Substance: LEVOFLOXACIN
     Dosage: 500 MG, UNK
     Route: 048
     Dates: start: 20161111, end: 20161129

REACTIONS (5)
  - Nausea [Recovered/Resolved]
  - Malignant melanoma [Unknown]
  - Pyrexia [Recovering/Resolving]
  - Urinary tract infection [Recovered/Resolved]
  - Metastasis [Unknown]

NARRATIVE: CASE EVENT DATE: 20161104
